FAERS Safety Report 20960806 (Version 1)
Quarter: 2022Q2

REPORT INFORMATION
  Report Type: Report from Study
  Country: CA (occurrence: None)
  Receive Date: 20220615
  Receipt Date: 20220615
  Transmission Date: 20220721
  Serious: Yes (Hospitalization)
  Sender: FDA-Public Use
  Company Number: CA-ROCHE-3115827

PATIENT
  Age: 53 Year
  Sex: Male

DRUGS (5)
  1. VENETOCLAX [Suspect]
     Active Substance: VENETOCLAX
     Indication: Haematological malignancy
     Dosage: DAYS 1-10 CYCLE 2 AND 3
     Route: 048
     Dates: start: 20220214, end: 20220403
  2. RITUXIMAB [Suspect]
     Active Substance: RITUXIMAB
     Indication: Haematological malignancy
     Dosage: DAY 1
     Route: 042
     Dates: start: 20220210, end: 20220331
  3. GEMCITABINE [Suspect]
     Active Substance: GEMCITABINE
     Indication: Haematological malignancy
     Dosage: DAY 1, DAY 8
     Route: 042
     Dates: start: 20220211, end: 20220331
  4. CISPLATIN [Suspect]
     Active Substance: CISPLATIN
     Indication: Haematological malignancy
     Dosage: DAY 1
     Route: 042
     Dates: start: 20220211, end: 20220331
  5. DEXAMETHASONE [Suspect]
     Active Substance: DEXAMETHASONE
     Indication: Haematological malignancy
     Route: 048
     Dates: start: 20220211, end: 20220403

REACTIONS (1)
  - Bacteraemia [Not Recovered/Not Resolved]

NARRATIVE: CASE EVENT DATE: 20220604
